FAERS Safety Report 25273938 (Version 1)
Quarter: 2025Q2

REPORT INFORMATION
  Report Type: Spontaneous
  Country: US (occurrence: US)
  Receive Date: 20250506
  Receipt Date: 20250506
  Transmission Date: 20250716
  Serious: No
  Sender: BAYER HEALTHCARE PHARMACEUTICALS INC.
  Company Number: US-BAYER-2025A060305

PATIENT
  Age: 35 Year
  Sex: Female

DRUGS (1)
  1. MIRENA [Suspect]
     Active Substance: LEVONORGESTREL
     Indication: Intrauterine contraception
     Dosage: 20?G/DAY
     Route: 015
     Dates: start: 20240404, end: 20240411

REACTIONS (4)
  - Heavy menstrual bleeding [None]
  - Dysmenorrhoea [None]
  - Device issue [None]
  - Device expulsion [None]

NARRATIVE: CASE EVENT DATE: 20240401
